FAERS Safety Report 7400821-7 (Version None)
Quarter: 2011Q2

REPORT INFORMATION
  Report Type: 
  Country: None (occurrence: None)
  Receive Date: 20110407
  Receipt Date: 20110404
  Transmission Date: 20111010
  Serious: Yes (Hospitalization)
  Sender: FDA-Public Use
  Company Number: US-BAYER-201041071NA

PATIENT
  Sex: Female
  Weight: 50 kg

DRUGS (8)
  1. ZOLOFT [Concomitant]
     Indication: DEPRESSION
  2. NEXIUM [Concomitant]
     Dosage: 40 MG (DAILY DOSE), ,
  3. ZANTAC [Concomitant]
     Dosage: 50 MG (DAILY DOSE), BID,
  4. IBUPROFEN [Concomitant]
     Indication: HEADACHE
  5. REGLAN [Concomitant]
     Indication: NAUSEA
  6. ZOLOFT [Concomitant]
     Indication: PANIC ATTACK
     Dosage: 50 MG (DAILY DOSE), ,
  7. YAZ [Suspect]
     Indication: MENSTRUAL DISORDER
     Dosage: UNK UNK, UNK
     Route: 048
     Dates: start: 20080301, end: 20090901
  8. REGLAN [Concomitant]
     Indication: VOMITING
     Dosage: BEFORE MEALS

REACTIONS (8)
  - MENTAL DISORDER [None]
  - DIARRHOEA [None]
  - BILIARY DYSKINESIA [None]
  - ABDOMINAL PAIN UPPER [None]
  - PNEUMOMEDIASTINUM [None]
  - INJURY [None]
  - DEPRESSION [None]
  - NAUSEA [None]
